FAERS Safety Report 10045043 (Version 2)
Quarter: 2014Q2

REPORT INFORMATION
  Report Type: Spontaneous
  Country: US (occurrence: US)
  Receive Date: 20140328
  Receipt Date: 20140409
  Transmission Date: 20141212
  Serious: Yes (Other)
  Sender: FDA-Public Use
  Company Number: CHPA2014US004413

PATIENT
  Age: 74 Year
  Sex: Female

DRUGS (11)
  1. PREVACID 24HR 15MG [Suspect]
     Indication: CHEST PAIN
     Dosage: 1 DF, PRN
     Route: 048
  2. PREVACID 24HR 15MG [Suspect]
     Indication: OFF LABEL USE
     Dosage: 1 DF, PRN
     Route: 048
  3. PREVACID 24HR 15MG [Suspect]
     Dosage: UNK
     Route: 048
  4. IBUPROFEN [Suspect]
     Indication: ARTHRALGIA
     Route: 065
  5. ALEVE [Suspect]
     Indication: ARTHRALGIA
     Route: 048
  6. PLAVIX [Suspect]
  7. LIPITOR [Concomitant]
     Indication: BLOOD CHOLESTEROL INCREASED
     Dosage: UNK, QD
  8. CRESTOR [Concomitant]
     Indication: BLOOD CHOLESTEROL INCREASED
     Dosage: UNK, QD
     Dates: start: 2011
  9. LIVALO [Concomitant]
     Indication: BLOOD CHOLESTEROL INCREASED
     Dosage: UNK, QD
  10. TYLENOL [Concomitant]
     Indication: ARTHRALGIA
     Dosage: 250 MG, UNK
     Route: 048
  11. ASPIRIN [Concomitant]
     Dosage: 81 MG, QD
     Route: 048

REACTIONS (5)
  - Coronary artery occlusion [Recovered/Resolved]
  - Intestinal haemorrhage [Recovered/Resolved]
  - Inappropriate schedule of drug administration [Unknown]
  - Incorrect drug administration duration [Unknown]
  - Therapeutic response changed [Unknown]
